FAERS Safety Report 12384558 (Version 1)
Quarter: 2016Q2

REPORT INFORMATION
  Report Type: Spontaneous
  Country: US (occurrence: None)
  Receive Date: 20160518
  Receipt Date: 20160518
  Transmission Date: 20160815
  Serious: Yes (Other)
  Sender: FDA-Public Use
  Company Number: None

PATIENT
  Age: 39 Year
  Sex: Female
  Weight: 108.41 kg

DRUGS (5)
  1. SIMVISTATIN [Concomitant]
     Active Substance: SIMVASTATIN
  2. SIROLIMUS. [Suspect]
     Active Substance: SIROLIMUS
     Indication: LYMPHANGIOLEIOMYOMATOSIS
     Dosage: IN THE MORNING
     Route: 048
     Dates: start: 20151015, end: 20160510
  3. SERTRALINE [Concomitant]
     Active Substance: SERTRALINE HYDROCHLORIDE
  4. SIROLIMUS. [Concomitant]
     Active Substance: SIROLIMUS
  5. MULTIVITAMIN [Concomitant]
     Active Substance: VITAMINS

REACTIONS (2)
  - Drug level below therapeutic [None]
  - Product substitution issue [None]

NARRATIVE: CASE EVENT DATE: 20160503
